FAERS Safety Report 7866993-5 (Version None)
Quarter: 2011Q4

REPORT INFORMATION
  Report Type: 
  Country: None (occurrence: None)
  Receive Date: 20111028
  Receipt Date: 20111013
  Transmission Date: 20120403
  Serious: Yes (Other)
  Sender: FDA-Public Use
  Company Number: JP-ROCHE-1005706

PATIENT
  Age: 1 Day
  Sex: Male
  Weight: 2.866 kg

DRUGS (5)
  1. MIDAZOLAM HCL [Suspect]
     Dosage: 0.2 MG/KG/H
     Route: 041
  2. MIDAZOLAM HCL [Suspect]
     Indication: SEDATION
     Dosage: 0.2 MG/KG,
     Route: 040
  3. MIDAZOLAM HCL [Suspect]
     Dosage: 0.1 MG/KG
     Route: 040
  4. MIDAZOLAM HCL [Suspect]
     Dosage: 0.1 MG/KG, TWICE
     Route: 040
  5. DIAZEPAM [Suspect]
     Indication: CONVULSION
     Dosage: 0.35 MG/KG
     Route: 042

REACTIONS (1)
  - DYSKINESIA [None]
